FAERS Safety Report 10273791 (Version 4)
Quarter: 2014Q3

REPORT INFORMATION
  Report Type: Spontaneous
  Country: DE (occurrence: DE)
  Receive Date: 20140702
  Receipt Date: 20140918
  Transmission Date: 20150326
  Serious: Yes (Hospitalization, Other)
  Sender: FDA-Public Use
  Company Number: DE-TEVA-484301GER

PATIENT
  Age: 54 Year
  Sex: Female
  Weight: 85 kg

DRUGS (1)
  1. COPAXONE [Suspect]
     Active Substance: GLATIRAMER ACETATE
     Indication: MULTIPLE SCLEROSIS
     Dosage: 20 MG/ML DAILY;

REACTIONS (11)
  - Erysipelas [Recovered/Resolved]
  - Injection site pain [Recovered/Resolved]
  - Gait disturbance [Recovered/Resolved]
  - Inflammatory marker increased [Recovered/Resolved]
  - Erythema [Recovered/Resolved]
  - Product lot number issue [Unknown]
  - Injection site haemorrhage [Recovered/Resolved]
  - C-reactive protein increased [Recovered/Resolved]
  - Drug dose omission [Unknown]
  - Injection site inflammation [Recovered/Resolved]
  - Movement disorder [Recovered/Resolved]

NARRATIVE: CASE EVENT DATE: 2014
